FAERS Safety Report 17833790 (Version 1)
Quarter: 2020Q2

REPORT INFORMATION
  Report Type: Spontaneous
  Country: US (occurrence: US)
  Receive Date: 20200527
  Receipt Date: 20200527
  Transmission Date: 20200714
  Serious: No
  Sender: FDA-Public Use
  Company Number: None

PATIENT
  Age: 56 Year
  Sex: Female

DRUGS (1)
  1. OCTREOTIDE 50MCG/ML SDV INJ [Suspect]
     Active Substance: OCTREOTIDE ACETATE
     Dosage: ?          OTHER STRENGTH: 50MCG/ML;?
     Route: 058
     Dates: start: 2020

REACTIONS (2)
  - Hypersensitivity [None]
  - Pancreatic abscess [None]

NARRATIVE: CASE EVENT DATE: 20200527
